FAERS Safety Report 24093865 (Version 1)
Quarter: 2024Q3

REPORT INFORMATION
  Report Type: Spontaneous
  Country: CN (occurrence: CN)
  Receive Date: 20240716
  Receipt Date: 20240716
  Transmission Date: 20241017
  Serious: Yes (Life-Threatening)
  Sender: ELI LILLY AND CO
  Company Number: CN-Merck Healthcare KGaA-2024037354

PATIENT
  Age: 41 Year
  Sex: Female

DRUGS (5)
  1. ERBITUX [Suspect]
     Active Substance: CETUXIMAB
     Indication: Rectal neoplasm
     Dosage: 600 MG, UNK
     Route: 041
     Dates: start: 20240612
  2. OXALIPLATIN [Suspect]
     Active Substance: OXALIPLATIN
     Indication: Rectal neoplasm
     Dosage: 100 MG, DAILY
     Route: 041
     Dates: start: 20240612, end: 20240612
  3. FLUOROURACIL [Suspect]
     Active Substance: FLUOROURACIL
     Indication: Rectal neoplasm
     Dosage: 0.5 G, DAILY
     Route: 042
     Dates: start: 20240612, end: 20240612
  4. FLUOROURACIL [Suspect]
     Active Substance: FLUOROURACIL
     Dosage: 3 G, DAILY
     Route: 041
     Dates: start: 20240612, end: 20240612
  5. LEVOLEUCOVORIN CALCIUM [Concomitant]
     Active Substance: LEVOLEUCOVORIN CALCIUM
     Indication: Rectal neoplasm
     Dosage: 300 MG, DAILY
     Route: 041
     Dates: start: 20240612, end: 20240612

REACTIONS (1)
  - White blood cell count decreased [Unknown]

NARRATIVE: CASE EVENT DATE: 20240624
